FAERS Safety Report 24996301 (Version 1)
Quarter: 2025Q1

REPORT INFORMATION
  Report Type: Spontaneous
  Country: US (occurrence: US)
  Receive Date: 20250221
  Receipt Date: 20250221
  Transmission Date: 20250408
  Serious: No
  Sender: PFIZER
  Company Number: US-PFIZER INC-202500039060

PATIENT
  Sex: Female

DRUGS (4)
  1. ADCETRIS [Suspect]
     Active Substance: BRENTUXIMAB VEDOTIN
  2. DOXORUBICIN [Concomitant]
     Active Substance: DOXORUBICIN
  3. VINBLASTINE [Concomitant]
     Active Substance: VINBLASTINE
  4. DACARBAZINE [Concomitant]
     Active Substance: DACARBAZINE

REACTIONS (1)
  - Muscle spasms [Recovered/Resolved]
